FAERS Safety Report 10757592 (Version 1)
Quarter: 2015Q1

REPORT INFORMATION
  Report Type: Spontaneous
  Country: US (occurrence: US)
  Receive Date: 20150203
  Receipt Date: 20150203
  Transmission Date: 20150721
  Serious: Yes (Hospitalization)
  Sender: FDA-Public Use
  Company Number: US-UNITED THERAPEUTICS-UNT-2014-011811

PATIENT
  Sex: Female
  Weight: 65.76 kg

DRUGS (2)
  1. REMODULIN [Suspect]
     Active Substance: TREPROSTINIL
     Indication: PULMONARY ARTERIAL HYPERTENSION
     Dosage: 0.096 ?G/KG, CONTINUING
     Route: 041
     Dates: start: 20080310
  2. REMODULIN [Suspect]
     Active Substance: TREPROSTINIL
     Dosage: 0.096 ?G/KG, CONTINUING
     Route: 041
     Dates: start: 20080310

REACTIONS (2)
  - Pulmonary arterial hypertension [Unknown]
  - Cardiac ablation [Unknown]

NARRATIVE: CASE EVENT DATE: 2014
